FAERS Safety Report 10370160 (Version 1)
Quarter: 2014Q1

REPORT INFORMATION
  Report Type: Spontaneous
  Country: US (occurrence: None)
  Receive Date: 20140306
  Receipt Date: 20140306
  Transmission Date: 20141002
  Serious: Yes (Other)
  Sender: FDA-Public Use
  Company Number: 163-21880-13071397

PATIENT
  Age: 74 Year
  Sex: Male

DRUGS (12)
  1. REVLIMID [Suspect]
     Indication: PLASMA CELL MYELOMA
     Dosage: 25 MG, 21 IN 28 D, PO?30-APR-2013 - TEMPORARILY INTERRUPTED
     Route: 048
     Dates: start: 20130430
  2. FENTANYL [Concomitant]
  3. GLYBURIDE (GLIBENCLAMIDE) [Concomitant]
  4. METOPROLOL SUCCINATE [Concomitant]
  5. CLONIDINE HCL (CLONIDINE HYDROCHLORIDE) INJECTION [Concomitant]
  6. TRAMADOL HCL (TRAMADOL HYDROCHLORIDE) [Concomitant]
  7. ASPIRINE (ACETYLSALICYLIC ACID) [Concomitant]
  8. ACIDOPHILUS (LACTOBACILLUS ACIDOPHILUS) [Concomitant]
  9. DEXAMETHASONE [Concomitant]
  10. POTASSIUM CL ER (POTASSIUM CHLORIDE) [Concomitant]
  11. VITAMIN C (ASCORBIC ACID) [Concomitant]
  12. ZINC [Concomitant]

REACTIONS (1)
  - Full blood count decreased [None]
